APPROVED DRUG PRODUCT: AMINOSYN II 4.25% W/ ELECT AND ADJUSTED PHOSPHATE IN DEXTROSE 10% IN PLASTIC CONTAINER
Active Ingredient: AMINO ACIDS; DEXTROSE; MAGNESIUM CHLORIDE; POTASSIUM ACETATE; POTASSIUM CHLORIDE; POTASSIUM PHOSPHATE, DIBASIC; SODIUM CHLORIDE
Strength: 4.25%;10GM/100ML;51MG/100ML;176.5MG/100ML;22.4MG/100ML;104.5MG/100ML;205MG/100ML
Dosage Form/Route: INJECTABLE;INJECTION
Application: N019682 | Product #003
Applicant: HOSPIRA INC
Approved: Nov 1, 1988 | RLD: No | RS: No | Type: DISCN